FAERS Safety Report 5157059-6 (Version None)
Quarter: 2006Q4

REPORT INFORMATION
  Report Type: 
  Country: None (occurrence: None)
  Receive Date: 20061127
  Receipt Date: 20060306
  Transmission Date: 20070319
  Serious: Yes (Hospitalization)
  Sender: FDA-Public Use
  Company Number: US-ELI_LILLY_AND_COMPANY-US200603004255

PATIENT
  Age: 51 Year
  Sex: Male
  Weight: 99.773 kg

DRUGS (12)
  1. ZIPRASIDONE [Concomitant]
     Dates: start: 20051201
  2. HALOPERIDOL [Concomitant]
     Dates: start: 19981101, end: 20000301
  3. MELLARIL [Concomitant]
     Dates: start: 19981101, end: 20000101
  4. DIVALPROEX SODIUM [Concomitant]
     Dates: start: 19981101, end: 20000101
  5. COGENTIN                                /UNK/ [Concomitant]
     Dates: start: 19981101, end: 20000101
  6. ATIVAN [Concomitant]
     Dates: start: 19981101, end: 20000101
  7. PROPRANOLOL [Concomitant]
     Dates: start: 20051201
  8. LISINOPRIL [Concomitant]
     Dates: start: 20051201
  9. ZYPREXA [Suspect]
     Dosage: 2.5 MG, UNK
     Dates: start: 20000301, end: 20000401
  10. ZYPREXA [Suspect]
     Dosage: 5 MG, UNK
     Dates: start: 20000401, end: 20040501
  11. ZYPREXA [Suspect]
     Dosage: 10 MG, UNK
     Dates: start: 20040501, end: 20040501
  12. ZYPREXA [Suspect]
     Dosage: 10 MG, UNK
     Dates: start: 20040601

REACTIONS (6)
  - BLOOD CHOLESTEROL ABNORMAL [None]
  - DIABETES MELLITUS [None]
  - GLYCOSURIA [None]
  - HYPERTENSION [None]
  - MYOCARDIAL INFARCTION [None]
  - OBESITY [None]
